FAERS Safety Report 20582922 (Version 1)
Quarter: 2022Q1

REPORT INFORMATION
  Report Type: Other
  Country: US (occurrence: None)
  Receive Date: 20220311
  Receipt Date: 20220311
  Transmission Date: 20220423
  Serious: Yes (Death)
  Sender: FDA-Public Use
  Company Number: US-ROCHE-3039549

PATIENT
  Sex: Female

DRUGS (27)
  1. OCREVUS [Suspect]
     Active Substance: OCRELIZUMAB
     Indication: Relapsing multiple sclerosis
     Dosage: DATE OF TREATMENT: 04/JAN/2018, 11/JAN/2019, 05/AUG/2020, 01/MAR/2021, 01/SEP/2021
     Route: 042
  2. ACETAMINOPHEN [Concomitant]
     Active Substance: ACETAMINOPHEN
  3. PROVENTIL HFA [Concomitant]
     Active Substance: ALBUTEROL SULFATE
  4. ARIPIPRAZOLE [Concomitant]
     Active Substance: ARIPIPRAZOLE
  5. ATORVASTATIN [Concomitant]
     Active Substance: ATORVASTATIN
  6. DULCOLAX (BISACODYL) [Concomitant]
     Active Substance: BISACODYL
  7. VITAMIN D3 [Concomitant]
     Active Substance: CHOLECALCIFEROL
  8. ACTHAR [Concomitant]
     Active Substance: CORTICOTROPIN
  9. DESVENLAFAXINE [Concomitant]
     Active Substance: DESVENLAFAXINE
  10. TECFIDERA [Concomitant]
     Active Substance: DIMETHYL FUMARATE
  11. DIPHENHYDRAMINE [Concomitant]
     Active Substance: DIPHENHYDRAMINE
  12. FAMOTIDINE [Concomitant]
     Active Substance: FAMOTIDINE
  13. FENOFIBRATE [Concomitant]
     Active Substance: FENOFIBRATE
  14. GABAPENTIN [Concomitant]
     Active Substance: GABAPENTIN
  15. LEVOTHYROXINE [Concomitant]
     Active Substance: LEVOTHYROXINE
  16. LIDODERM [Concomitant]
     Active Substance: LIDOCAINE
  17. LINZESS [Concomitant]
     Active Substance: LINACLOTIDE
  18. ATIVAN [Concomitant]
     Active Substance: LORAZEPAM
  19. MYRBETRIQ [Concomitant]
     Active Substance: MIRABEGRON
  20. ONDANSETRON [Concomitant]
     Active Substance: ONDANSETRON
  21. OXYCODONE [Concomitant]
     Active Substance: OXYCODONE
  22. POLYETHYLENE GLYCOL 3350 AND ELECTROLYTES [Concomitant]
     Active Substance: POLYETHYLENE GLYCOL 3350\POTASSIUM CHLORIDE\SODIUM BICARBONATE\SODIUM CHLORIDE\SODIUM SULFATE
  23. PRAMIPEXOLE [Concomitant]
     Active Substance: PRAMIPEXOLE
  24. PROMETHAZINE [Concomitant]
     Active Substance: PROMETHAZINE HYDROCHLORIDE
  25. TOPIRAMATE [Concomitant]
     Active Substance: TOPIRAMATE
  26. QUETIAPINE [Concomitant]
     Active Substance: QUETIAPINE
  27. TRAZODONE [Concomitant]
     Active Substance: TRAZODONE HYDROCHLORIDE

REACTIONS (1)
  - COVID-19 [Fatal]
